FAERS Safety Report 15377494 (Version 1)
Quarter: 2018Q3

REPORT INFORMATION
  Report Type: Spontaneous
  Country: US (occurrence: US)
  Receive Date: 20180913
  Receipt Date: 20180913
  Transmission Date: 20181010
  Serious: Yes (Other)
  Sender: FDA-Public Use
  Company Number: US-ASTELLAS-2018US040243

PATIENT
  Sex: Male

DRUGS (2)
  1. MYRBETRIQ [Suspect]
     Active Substance: MIRABEGRON
     Indication: POLLAKIURIA
     Route: 065
     Dates: start: 201807
  2. MYRBETRIQ [Suspect]
     Active Substance: MIRABEGRON
     Indication: URINE OUTPUT DECREASED

REACTIONS (1)
  - Penile haemorrhage [Unknown]

NARRATIVE: CASE EVENT DATE: 20180906
